FAERS Safety Report 24971196 (Version 2)
Quarter: 2025Q1

REPORT INFORMATION
  Report Type: Spontaneous
  Country: PL (occurrence: PL)
  Receive Date: 20250214
  Receipt Date: 20250225
  Transmission Date: 20250409
  Serious: Yes (Other)
  Sender: PFIZER
  Company Number: PL-RECORDATI RARE DISEASE INC.-2025000725

PATIENT
  Age: 33 Year
  Sex: Male

DRUGS (7)
  1. CABERGOLINE [Suspect]
     Active Substance: CABERGOLINE
     Indication: Pituitary tumour benign
     Dosage: 2 MILLIGRAM, QW
  2. CABERGOLINE [Suspect]
     Active Substance: CABERGOLINE
     Indication: Pituitary-dependent Cushing^s syndrome
  3. PASIREOTIDE [Suspect]
     Active Substance: PASIREOTIDE
     Indication: Pituitary tumour benign
     Route: 030
  4. PASIREOTIDE [Suspect]
     Active Substance: PASIREOTIDE
     Indication: Pituitary-dependent Cushing^s syndrome
     Route: 030
  5. PASIREOTIDE [Suspect]
     Active Substance: PASIREOTIDE
     Route: 030
  6. OSILODROSTAT [Suspect]
     Active Substance: OSILODROSTAT
     Indication: Pituitary tumour benign
     Dosage: 1 MILLIGRAM, BID
  7. OSILODROSTAT [Suspect]
     Active Substance: OSILODROSTAT
     Indication: Pituitary-dependent Cushing^s syndrome
     Dosage: TITRATION TO 4MG PER DAY

REACTIONS (2)
  - Drug ineffective for unapproved indication [Unknown]
  - Off label use [Unknown]
